FAERS Safety Report 23190330 (Version 2)
Quarter: 2024Q1

REPORT INFORMATION
  Report Type: Spontaneous
  Country: US (occurrence: US)
  Receive Date: 20231116
  Receipt Date: 20240102
  Transmission Date: 20240409
  Serious: No
  Sender: FDA-Public Use
  Company Number: US-TOLMAR, INC.-23US044435

PATIENT
  Sex: Female

DRUGS (2)
  1. FENSOLVI [Suspect]
     Active Substance: LEUPROLIDE ACETATE
     Indication: Pituitary gonadotropin hyperfunction
     Dosage: 45 MILLIGRAM
     Route: 058
  2. DEVICE [Suspect]
     Active Substance: DEVICE
     Indication: Pituitary gonadotropin hyperfunction
     Dosage: UNK

REACTIONS (1)
  - Drug ineffective for unapproved indication [Unknown]
